FAERS Safety Report 25459642 (Version 2)
Quarter: 2025Q2

REPORT INFORMATION
  Report Type: Report from Study
  Country: US (occurrence: US)
  Receive Date: 20250620
  Receipt Date: 20250625
  Transmission Date: 20250717
  Serious: Yes (Death, Life-Threatening)
  Sender: BIOGEN
  Company Number: US-BIOGEN-2025BI01314436

PATIENT
  Sex: Female

DRUGS (1)
  1. TYSABRI [Suspect]
     Active Substance: NATALIZUMAB
     Indication: Multiple sclerosis
     Route: 050
     Dates: start: 20100901, end: 20250402

REACTIONS (2)
  - Cerebral haemorrhage [Fatal]
  - Maternal exposure during pregnancy [Recovered/Resolved]
